FAERS Safety Report 12572321 (Version 1)
Quarter: 2016Q3

REPORT INFORMATION
  Report Type: Report from Study
  Country: US (occurrence: US)
  Receive Date: 20160719
  Receipt Date: 20160719
  Transmission Date: 20161109
  Serious: Yes (Hospitalization, Other)
  Sender: FDA-Public Use
  Company Number: US-PURDUE PHARMA-USA-2016-0132229

PATIENT
  Age: 73 Year
  Sex: Female

DRUGS (1)
  1. OXYCONTIN [Suspect]
     Active Substance: OXYCODONE HYDROCHLORIDE
     Indication: PAIN
     Dosage: 20 MG, Q12H
     Route: 048

REACTIONS (11)
  - Limb operation [Unknown]
  - Unevaluable event [Unknown]
  - Activities of daily living impaired [Unknown]
  - Chronic obstructive pulmonary disease [Unknown]
  - Hernia [Unknown]
  - Dyspnoea [Unknown]
  - Intervertebral disc degeneration [Unknown]
  - Gastric disorder [Unknown]
  - Back disorder [Unknown]
  - Intestinal resection [Unknown]
  - Myocardial infarction [Unknown]

NARRATIVE: CASE EVENT DATE: 201604
